FAERS Safety Report 4961723-9 (Version None)
Quarter: 2006Q2

REPORT INFORMATION
  Report Type: 
  Country: None (occurrence: None)
  Receive Date: 20060404
  Receipt Date: 20051222
  Transmission Date: 20061013
  Serious: Yes (Death)
  Sender: FDA-Public Use
  Company Number: FR-AVENTIS-200514290FR

PATIENT
  Age: 35 Year
  Sex: Male
  Weight: 70 kg

DRUGS (2)
  1. BIRODOGYL [Suspect]
     Indication: TOOTH DISORDER
     Dosage: DOSE UNIT: UNITS
     Route: 048
     Dates: start: 20051208, end: 20051213
  2. NAPROXEN [Concomitant]
     Route: 048
     Dates: start: 20051208, end: 20051211

REACTIONS (8)
  - ABDOMINAL PAIN [None]
  - ABNORMAL BEHAVIOUR [None]
  - COMPLETED SUICIDE [None]
  - DELIRIUM [None]
  - FATIGUE [None]
  - FEELING ABNORMAL [None]
  - HALLUCINATION [None]
  - PARANOIA [None]
